FAERS Safety Report 9215014 (Version 3)
Quarter: 2013Q2

REPORT INFORMATION
  Report Type: Spontaneous
  Country: TR (occurrence: TR)
  Receive Date: 20130405
  Receipt Date: 20130417
  Transmission Date: 20140414
  Serious: Yes (Other)
  Sender: FDA-Public Use
  Company Number: TR-AMGEN-TURSP2013023130

PATIENT
  Age: 41 Year
  Sex: Female

DRUGS (4)
  1. ENBREL [Suspect]
     Indication: PSORIATIC ARTHROPATHY
     Dosage: 50 MG, WEEKLY
     Route: 058
     Dates: start: 201302, end: 201303
  2. ENBREL [Suspect]
     Indication: PSORIASIS
  3. RANTUDIL [Concomitant]
     Dosage: 60 MG, 2X/DAY
  4. NEXIUM                             /01479302/ [Concomitant]
     Dosage: 40 MG, 1X/DAY

REACTIONS (3)
  - Panniculitis [Recovering/Resolving]
  - Injection site infection [Recovering/Resolving]
  - Injection site reaction [Recovering/Resolving]
